FAERS Safety Report 5950696-8 (Version None)
Quarter: 2008Q4

REPORT INFORMATION
  Report Type: 
  Country: None (occurrence: None)
  Receive Date: 20081112
  Receipt Date: 20081024
  Transmission Date: 20090506
  Serious: Yes (Death, Hospitalization, Other)
  Sender: FDA-Public Use
  Company Number: PHHY2008BE25366

PATIENT
  Age: 86 Year
  Sex: Female

DRUGS (6)
  1. VAA489A VAL_AML+TAB [Suspect]
     Indication: HYPERTENSION
     Dosage: 5/160 MG
  2. GLUCOPHAGE [Concomitant]
  3. GLICLAZIDE [Concomitant]
  4. ASPIRIN [Concomitant]
  5. MOXON [Concomitant]
     Dosage: UNK
  6. ACE INHIBITOR NOS [Concomitant]

REACTIONS (6)
  - DEATH [None]
  - DEMENTIA [None]
  - FALL [None]
  - GENERAL PHYSICAL HEALTH DETERIORATION [None]
  - RENAL FAILURE [None]
  - TREATMENT NONCOMPLIANCE [None]
